FAERS Safety Report 6239673-X (Version None)
Quarter: 2009Q2

REPORT INFORMATION
  Report Type: 
  Country: None (occurrence: None)
  Receive Date: 20090619
  Receipt Date: 20090608
  Transmission Date: 20091009
  Serious: Yes (Hospitalization, Other)
  Sender: FDA-Public Use
  Company Number: ADE2009-0657

PATIENT
  Age: 40 Year
  Sex: Female

DRUGS (8)
  1. PAROXETINE HCL [Suspect]
     Indication: DEPRESSION
  2. FENTANYL-100 [Suspect]
     Indication: GENERAL ANAESTHESIA
     Dosage: 100UG - DAILY - IV
     Route: 042
  3. THIOPENTAL SODIUM [Concomitant]
  4. VECURONIUM BROMIDE [Concomitant]
  5. SEVOFLURANE IN NITROUS OXIDE [Concomitant]
  6. NEOSTIGMINE [Concomitant]
  7. ATROPINE [Concomitant]
  8. DICLOFENAC [Concomitant]

REACTIONS (7)
  - CONFUSIONAL STATE [None]
  - DELAYED RECOVERY FROM ANAESTHESIA [None]
  - HAEMODYNAMIC INSTABILITY [None]
  - NYSTAGMUS [None]
  - PUPILLARY REFLEX IMPAIRED [None]
  - PUPILS UNEQUAL [None]
  - SOMNOLENCE [None]
